FAERS Safety Report 9319867 (Version 1)
Quarter: 2013Q2

REPORT INFORMATION
  Report Type: Spontaneous
  Country: US (occurrence: US)
  Receive Date: 20130530
  Receipt Date: 20130530
  Transmission Date: 20140414
  Serious: Yes (Other)
  Sender: FDA-Public Use
  Company Number: US-JNJFOC-20130515346

PATIENT
  Sex: Female

DRUGS (4)
  1. ZYRTEC IR [Suspect]
     Route: 048
  2. ZYRTEC IR [Suspect]
     Indication: PRODUCT USED FOR UNKNOWN INDICATION
     Route: 048
  3. XANAX [Concomitant]
     Indication: SLEEP DISORDER THERAPY
     Route: 065
  4. ATIVAN [Concomitant]
     Indication: SLEEP DISORDER THERAPY
     Route: 065

REACTIONS (1)
  - Hallucination [Unknown]
